FAERS Safety Report 20327996 (Version 3)
Quarter: 2022Q1

REPORT INFORMATION
  Report Type: Spontaneous
  Country: DE (occurrence: DE)
  Receive Date: 20220112
  Receipt Date: 20220121
  Transmission Date: 20220423
  Serious: Yes (Other)
  Sender: FDA-Public Use
  Company Number: DE-LABORATORIOS LICONSA S.A.-2112DE03443

PATIENT
  Sex: Male
  Weight: 116 kg

DRUGS (9)
  1. ELIQUIS [Suspect]
     Active Substance: APIXABAN
     Indication: Cerebrovascular accident prophylaxis
     Dosage: 2 TABLET(S) DAILY
     Route: 065
     Dates: start: 20190412
  2. ATORVASTATIN CALCIUM [Suspect]
     Active Substance: ATORVASTATIN CALCIUM
     Dosage: 10 MILLIGRAM, QD
     Route: 065
     Dates: start: 202106
  3. DOXAZOSIN MESYLATE [Suspect]
     Active Substance: DOXAZOSIN MESYLATE
     Dosage: 1 TABLET(S) DAILY
     Route: 065
     Dates: start: 202108
  4. HUMALOG [Suspect]
     Active Substance: INSULIN LISPRO
     Dosage: 1 IF REQUIRED
     Route: 065
     Dates: start: 201112
  5. METOPROLOL SUCCINATE [Suspect]
     Active Substance: METOPROLOL SUCCINATE
     Dosage: 2 TABLET(S) DAILY
     Route: 065
     Dates: start: 201112
  6. CANDESARTAN CILEXETIL [Suspect]
     Active Substance: CANDESARTAN CILEXETIL
     Dosage: 2 TABLET(S) DAILY
     Route: 065
     Dates: start: 201112
  7. METFORMIN HYDROCHLORIDE [Suspect]
     Active Substance: METFORMIN HYDROCHLORIDE
     Dosage: 2 TABLET(S) DAILY
     Route: 065
     Dates: start: 201112
  8. PROTAPHANE [Suspect]
     Active Substance: INSULIN HUMAN
     Dosage: 1 INJECTION DAILY
     Route: 065
     Dates: start: 201112
  9. CHOLECALCIFEROL [Suspect]
     Active Substance: CHOLECALCIFEROL
     Dosage: 1 CAPSULE(S) WEEKLY
     Route: 065
     Dates: start: 202108

REACTIONS (2)
  - Lymphorrhoea [Not Recovered/Not Resolved]
  - Lymphoedema [Not Recovered/Not Resolved]

NARRATIVE: CASE EVENT DATE: 20111201
